FAERS Safety Report 5208342-7 (Version None)
Quarter: 2007Q1

REPORT INFORMATION
  Report Type: 
  Country: None (occurrence: None)
  Receive Date: 20070110
  Receipt Date: 20070110
  Transmission Date: 20070707
  Serious: Yes (Death)
  Sender: FDA-Public Use
  Company Number: None

PATIENT
  Sex: Male
  Weight: 9.5 kg

DRUGS (4)
  1. CEFOTAXIME [Suspect]
     Indication: ESCHERICHIA INFECTION
     Dosage: 500 MG Q8 HOUR IV
     Route: 042
  2. VINCRISTINE [Suspect]
     Indication: MEDULLOBLASTOMA
     Dosage: 0.5 MG X1 IV
     Route: 042
  3. FILGRASTIM [Concomitant]
  4. NYSTATIN [Concomitant]

REACTIONS (9)
  - CARDIO-RESPIRATORY ARREST [None]
  - CRYING [None]
  - CULTURE URINE POSITIVE [None]
  - CYANOSIS [None]
  - ESCHERICHIA INFECTION [None]
  - LOSS OF CONSCIOUSNESS [None]
  - NYSTAGMUS [None]
  - RESPIRATORY RATE INCREASED [None]
  - VOMITING [None]
